FAERS Safety Report 20694904 (Version 2)
Quarter: 2022Q2

REPORT INFORMATION
  Report Type: Spontaneous
  Country: GB (occurrence: GB)
  Receive Date: 20220411
  Receipt Date: 20220419
  Transmission Date: 20220721
  Serious: Yes (Hospitalization, Other)
  Sender: FDA-Public Use
  Company Number: GB-Accord-259628

PATIENT
  Age: 51 Year
  Sex: Female

DRUGS (1)
  1. CLOZAPINE [Suspect]
     Active Substance: CLOZAPINE
     Indication: Schizophrenia
     Dosage: 12.5 MG, DOUBLED TO 25 MG THE FOLLOWING DAY, THEN UP-TITRATED WITH

REACTIONS (7)
  - Pulmonary embolism [Recovered/Resolved]
  - Salivary hypersecretion [Recovered/Resolved]
  - Sedation [Recovered/Resolved]
  - Constipation [Recovered/Resolved]
  - Lethargy [Unknown]
  - Tachycardia [Unknown]
  - Lymphopenia [Recovered/Resolved]
